FAERS Safety Report 23101539 (Version 1)
Quarter: 2023Q4

REPORT INFORMATION
  Report Type: Report from Study
  Country: US (occurrence: US)
  Receive Date: 20231025
  Receipt Date: 20231025
  Transmission Date: 20240110
  Serious: Yes (Death)
  Sender: FDA-Public Use
  Company Number: US-ABBVIE-5463118

PATIENT
  Sex: Female

DRUGS (1)
  1. VENCLEXTA [Suspect]
     Active Substance: VENETOCLAX
     Indication: Acute myeloid leukaemia
     Dosage: TAKE 3 TABLETS BY MOUTH ONCE DAILY WITH FOOD AND A FULL GLASS OF WATER AT THE SAME TIME EACH DAY ...
     Route: 048

REACTIONS (1)
  - Neoplasm malignant [Fatal]
